FAERS Safety Report 10211573 (Version 1)
Quarter: 2014Q2

REPORT INFORMATION
  Report Type: Spontaneous
  Country: US (occurrence: US)
  Receive Date: 20140602
  Receipt Date: 20140602
  Transmission Date: 20141212
  Serious: Yes (Hospitalization)
  Sender: FDA-Public Use
  Company Number: US-GILEAD-2014-0103925

PATIENT
  Sex: Male

DRUGS (3)
  1. SOVALDI [Suspect]
     Indication: HEPATITIS C
     Dosage: 400 MG, UNK
     Route: 048
  2. PEGINTERFERON ALFA [Suspect]
     Indication: HEPATITIS C
     Dosage: 150 MG, UNK
     Route: 065
  3. RIBAVIRIN [Concomitant]
     Indication: HEPATITIS C
     Dosage: 1200 MG, UNK

REACTIONS (8)
  - Tachycardia [Unknown]
  - Orthostatic hypotension [Unknown]
  - Dyspnoea [Unknown]
  - White blood cell count decreased [Unknown]
  - Fatigue [Unknown]
  - Malaise [Unknown]
  - Haematocrit decreased [Unknown]
  - Dizziness [Unknown]
